FAERS Safety Report 8103073-8 (Version None)
Quarter: 2012Q1

REPORT INFORMATION
  Report Type: 
  Country: None (occurrence: None)
  Receive Date: 20120201
  Receipt Date: 20120201
  Transmission Date: 20120608
  Serious: No
  Sender: FDA-Public Use
  Company Number: None

PATIENT
  Age: 60 Year
  Sex: Female
  Weight: 63.502 kg

DRUGS (2)
  1. DEXAMETHASONE [Suspect]
     Indication: ARTHRALGIA
     Dosage: 1 TABLET
     Route: 048
     Dates: start: 20120106, end: 20120113
  2. DEXAMETHASONE [Suspect]
     Indication: PAIN IN EXTREMITY
     Dosage: 1 TABLET
     Route: 048
     Dates: start: 20120106, end: 20120113

REACTIONS (2)
  - BALANCE DISORDER [None]
  - DYSKINESIA [None]
